FAERS Safety Report 8595048-X (Version None)
Quarter: 2012Q3

REPORT INFORMATION
  Report Type: 
  Country: None (occurrence: None)
  Receive Date: 20120815
  Receipt Date: 20120807
  Transmission Date: 20120928
  Serious: Yes (Other)
  Sender: FDA-Public Use
  Company Number: PL-PFIZER INC-2012197211

PATIENT

DRUGS (1)
  1. CORDARONE [Suspect]
     Indication: FOETAL EXPOSURE TIMING UNSPECIFIED
     Dosage: UNK
     Route: 064

REACTIONS (5)
  - HYPOMAGNESAEMIA [None]
  - TEMPERATURE REGULATION DISORDER [None]
  - MATERNAL EXPOSURE TIMING UNSPECIFIED [None]
  - FOETAL GROWTH RESTRICTION [None]
  - CONGENITAL INFECTION [None]
